FAERS Safety Report 17646884 (Version 1)
Quarter: 2020Q2

REPORT INFORMATION
  Report Type: Report from Study
  Country: IL (occurrence: IL)
  Receive Date: 20200408
  Receipt Date: 20200408
  Transmission Date: 20200713
  Serious: Yes (Other)
  Sender: FDA-Public Use
  Company Number: IL-IPSEN BIOPHARMACEUTICALS, INC.-2019-22311

PATIENT
  Age: 82 Year
  Sex: Male

DRUGS (17)
  1. AMITRIPTYLINE [Concomitant]
     Active Substance: AMITRIPTYLINE
  2. BISOPROLOL FUMARATE. [Concomitant]
     Active Substance: BISOPROLOL FUMARATE
  3. CYANOCOBALAMIN. [Concomitant]
     Active Substance: CYANOCOBALAMIN
     Route: 060
  4. TAMSULOSIN [Concomitant]
     Active Substance: TAMSULOSIN
  5. EASY IRON [Concomitant]
     Dosage: 90 CF
  6. ATORVASTATIN [Concomitant]
     Active Substance: ATORVASTATIN
  7. COLECALCIFEROL [Concomitant]
     Active Substance: CHOLECALCIFEROL
     Dosage: 5 DROPS PER DAY
  8. OMEPRAZOLE. [Concomitant]
     Active Substance: OMEPRAZOLE
  9. COAL TAR ALCOHOLIC EXTRACT [Concomitant]
  10. TESTOSTERONE. [Concomitant]
     Active Substance: TESTOSTERONE
  11. LOSARTAN. [Concomitant]
     Active Substance: LOSARTAN
  12. ACETYLSALICYLIC ACID [Concomitant]
     Active Substance: ASPIRIN
  13. ZOLPIDEM TARTRATE. [Concomitant]
     Active Substance: ZOLPIDEM TARTRATE
  14. TRAMADOL. [Concomitant]
     Active Substance: TRAMADOL
  15. SOMATULINE [Suspect]
     Active Substance: LANREOTIDE ACETATE
     Indication: ACROMEGALY
     Route: 058
     Dates: start: 20160118
  16. BIFONAZOLE [Concomitant]
     Active Substance: BIFONAZOLE
     Dosage: 1 % SHAMPOO
  17. CALCIUM CARBONATE. [Concomitant]
     Active Substance: CALCIUM CARBONATE

REACTIONS (6)
  - Spinal fracture [Unknown]
  - Osteoarthritis [Unknown]
  - Musculoskeletal pain [Unknown]
  - Peripheral swelling [Unknown]
  - Pain in extremity [Not Recovered/Not Resolved]
  - Hyperparathyroidism [Unknown]

NARRATIVE: CASE EVENT DATE: 20191117
